FAERS Safety Report 9094954 (Version 2)
Quarter: 2013Q1

REPORT INFORMATION
  Report Type: Spontaneous
  Country: US (occurrence: US)
  Receive Date: 20130201
  Receipt Date: 20130315
  Transmission Date: 20140127
  Serious: Yes (Hospitalization, Other)
  Sender: FDA-Public Use
  Company Number: US-ELI_LILLY_AND_COMPANY-US201301007998

PATIENT
  Age: 79 Year
  Sex: Female

DRUGS (2)
  1. EVISTA [Suspect]
     Indication: OSTEOPOROSIS
  2. METOPROLOL [Concomitant]
     Indication: ATRIAL FIBRILLATION

REACTIONS (1)
  - Atrial fibrillation [Recovering/Resolving]
